FAERS Safety Report 22866639 (Version 3)
Quarter: 2023Q4

REPORT INFORMATION
  Report Type: Spontaneous
  Country: DE (occurrence: DE)
  Receive Date: 20230825
  Receipt Date: 20231009
  Transmission Date: 20240110
  Serious: Yes (Death, Hospitalization, Other)
  Sender: FDA-Public Use
  Company Number: DE-AMK-267792

PATIENT
  Age: 81 Year
  Sex: Male
  Weight: 53 kg

DRUGS (17)
  1. KEYTRUDA [Suspect]
     Active Substance: PEMBROLIZUMAB
     Indication: Anaplastic thyroid cancer
     Dosage: 200 MILLIGRAM, CYCLICAL
     Dates: start: 20230719, end: 202307
  2. KEYTRUDA [Suspect]
     Active Substance: PEMBROLIZUMAB
     Indication: Metastases to lymph nodes
  3. LENVATINIB MESYLATE [Suspect]
     Active Substance: LENVATINIB MESYLATE
     Indication: Metastases to lymph nodes
     Dosage: 10 MILLIGRAM (1-0-0) QD
     Route: 048
     Dates: start: 202303
  4. LENVATINIB MESYLATE [Suspect]
     Active Substance: LENVATINIB MESYLATE
     Indication: Anaplastic thyroid cancer
  5. ATORVASTATIN [Concomitant]
     Active Substance: ATORVASTATIN
     Dosage: 40 MILLIGRAM (0-0-1)
  6. RAMIPRIL [Concomitant]
     Active Substance: RAMIPRIL
     Indication: Cardiac failure
     Dosage: 2.5 MILLIGRAM, (0,5-0-0) QD
     Route: 048
  7. RAMIPRIL [Concomitant]
     Active Substance: RAMIPRIL
     Indication: Ejection fraction decreased
  8. TORSEMIDE [Concomitant]
     Active Substance: TORSEMIDE
     Indication: Ejection fraction decreased
     Dosage: 20 MILLIGRAM, (1-1-0) QD
     Dates: start: 202308
  9. TORSEMIDE [Concomitant]
     Active Substance: TORSEMIDE
     Indication: Cardiac failure
     Dosage: 10 MILLIGRAM, (1-0-0) QD
     Route: 048
     Dates: end: 202308
  10. ELIQUIS [Concomitant]
     Active Substance: APIXABAN
     Indication: Atrial fibrillation
     Dosage: 5 MILLIGRAM (1-0-1)
     Route: 048
     Dates: start: 201307
  11. CALCITRIOL [Concomitant]
     Active Substance: CALCITRIOL
     Dosage: 0.25 MILLIGRAM (1-0-1)
  12. ESOMEPRAZOLE [Concomitant]
     Active Substance: ESOMEPRAZOLE
     Indication: Gastrointestinal haemorrhage
     Dosage: 40 MILLIGRAM, (1-0-0) QD
  13. METOPROLOL [Concomitant]
     Active Substance: METOPROLOL
     Indication: Ejection fraction decreased
     Dosage: 23.75 MILLIGRAM, (1/2-0-0) QD
     Route: 048
  14. METOPROLOL [Concomitant]
     Active Substance: METOPROLOL
     Indication: Cardiac failure
  15. CALCIUM ACETATE;MAGNESIUM CARBONATE [Concomitant]
     Dosage: 1 DOSAGE FORM (1-0-1)
  16. LEVOTHYROXINE SODIUM [Concomitant]
     Active Substance: LEVOTHYROXINE SODIUM
     Dosage: 125 MICROGRAM, (1-0-0) QD
     Route: 048
  17. CALCIUM [Concomitant]
     Active Substance: CALCIUM
     Dosage: 500 MILLIGRAM (1-0-1)

REACTIONS (5)
  - Cardiac failure [Fatal]
  - General physical health deterioration [Unknown]
  - Respiratory failure [Unknown]
  - Pulmonary congestion [Unknown]
  - Toxicity to various agents [Unknown]

NARRATIVE: CASE EVENT DATE: 20230701
